FAERS Safety Report 7448803-3 (Version None)
Quarter: 2011Q2

REPORT INFORMATION
  Report Type: 
  Country: None (occurrence: None)
  Receive Date: 20110429
  Receipt Date: 20100810
  Transmission Date: 20111010
  Serious: No
  Sender: FDA-Public Use
  Company Number: US-ASTRAZENECA-2010SE37466

PATIENT
  Sex: Female

DRUGS (4)
  1. CITALOPRAM [Suspect]
     Route: 065
  2. VALACYCLOVIR [Suspect]
     Route: 065
  3. NEXIUM [Suspect]
     Route: 048
  4. VALTREX [Suspect]
     Route: 065

REACTIONS (2)
  - SKIN LESION [None]
  - PARAESTHESIA [None]
